FAERS Safety Report 7655416-7 (Version None)
Quarter: 2011Q3

REPORT INFORMATION
  Report Type: 
  Country: None (occurrence: None)
  Receive Date: 20110729
  Receipt Date: 20110714
  Transmission Date: 20111222
  Serious: Yes (Hospitalization, Other)
  Sender: FDA-Public Use
  Company Number: AUR-APL-2011-04358

PATIENT
  Age: 77 Year
  Sex: Female
  Weight: 62 kg

DRUGS (6)
  1. FALITHROM ^HEXAL^ (PHENPROCOUMAN) [Concomitant]
     Indication: THROMBOSIS PROPHYLAXIS
     Dosage: 3 MG (3 MG, 1 IN 1 D), ORAL
     Route: 048
     Dates: start: 20101029, end: 20110523
  2. L-THYROXIN (LEVOTHYROXIN SODIUM) [Concomitant]
  3. RISOPROLOL (BISOPROLOL) [Concomitant]
  4. DRONEDARONE HCL [Suspect]
     Indication: PRODUCT USED FOR UNKNOWN INDICATION
     Dosage: 1-XXL 9400 MG, 1 D), ORAL
     Route: 048
     Dates: start: 20101216, end: 20101223
  5. SIMVASTATIN [Suspect]
     Indication: PRODUCT USED FOR UNKNOWN INDICATION
     Dosage: 10-20 MG (1 D), ORAL
     Route: 048
     Dates: start: 20101018, end: 20110523
  6. RAMIPRIL [Concomitant]

REACTIONS (5)
  - COAGULOPATHY [None]
  - HEPATIC FAILURE [None]
  - HEPATITIS ACUTE [None]
  - CHOLESTASIS [None]
  - CYTOMEGALOVIRUS INFECTION [None]
